FAERS Safety Report 8075237-3 (Version None)
Quarter: 2012Q1

REPORT INFORMATION
  Report Type: 
  Country: None (occurrence: None)
  Receive Date: 20120127
  Receipt Date: 20120117
  Transmission Date: 20120608
  Serious: Yes (Hospitalization, Other)
  Sender: FDA-Public Use
  Company Number: US-JNJFOC-20120100401

PATIENT
  Sex: Female
  Weight: 80 kg

DRUGS (7)
  1. XARELTO [Suspect]
     Indication: THROMBOSIS PROPHYLAXIS
     Route: 048
     Dates: start: 20111227, end: 20111229
  2. KEFLEX [Concomitant]
     Indication: URINARY TRACT INFECTION
     Dates: start: 20111227
  3. ZOCOR [Concomitant]
     Indication: LIPIDS INCREASED
     Dates: start: 20111226
  4. XARELTO [Suspect]
     Indication: KNEE ARTHROPLASTY
     Route: 048
     Dates: start: 20111227, end: 20111229
  5. MIRALAX [Concomitant]
     Indication: CONSTIPATION
     Dates: start: 20111227
  6. ATENOLOL [Concomitant]
     Indication: HYPERTENSION
     Dates: start: 20111226
  7. ASCORBIC ACID [Concomitant]
     Indication: NUTRITIONAL SUPPORT
     Dates: start: 20111227

REACTIONS (2)
  - PULMONARY EMBOLISM [None]
  - ACUTE MYOCARDIAL INFARCTION [None]
